FAERS Safety Report 18146150 (Version 1)
Quarter: 2020Q3

REPORT INFORMATION
  Report Type: Spontaneous
  Country: US (occurrence: US)
  Receive Date: 20200813
  Receipt Date: 20200813
  Transmission Date: 20201103
  Serious: Yes (Hospitalization)
  Sender: FDA-Public Use
  Company Number: US-CELGENEUS-USA-20200801698

PATIENT
  Sex: Male

DRUGS (10)
  1. MELOXICAM. [Concomitant]
     Active Substance: MELOXICAM
     Indication: BENIGN PROSTATIC HYPERPLASIA
     Route: 065
  2. PROSCAR [Concomitant]
     Active Substance: FINASTERIDE
     Indication: BENIGN PROSTATIC HYPERPLASIA
     Route: 065
  3. VITAMIN B12 [Concomitant]
     Active Substance: CYANOCOBALAMIN
     Indication: SUPPLEMENTATION THERAPY
     Route: 065
  4. DEXAMETHASONE. [Concomitant]
     Active Substance: DEXAMETHASONE
     Indication: PLASMA CELL MYELOMA
     Route: 065
  5. NINLARO [Concomitant]
     Active Substance: IXAZOMIB CITRATE
     Indication: PLASMA CELL MYELOMA
     Route: 065
  6. SENNA [Concomitant]
     Active Substance: SENNA LEAF\SENNOSIDES\SENNOSIDES A AND B
     Indication: CONSTIPATION
     Route: 065
  7. REVLIMID [Suspect]
     Active Substance: LENALIDOMIDE
     Indication: PLASMA CELL MYELOMA
     Dosage: 10 MILLIGRAM
     Route: 048
     Dates: start: 20200616
  8. AMLODIPINE [Concomitant]
     Active Substance: AMLODIPINE BESYLATE
     Indication: HYPERTENSION
     Route: 065
  9. ATENOLOL. [Concomitant]
     Active Substance: ATENOLOL
     Indication: HYPERTENSION
     Route: 065
  10. VELCADE [Concomitant]
     Active Substance: BORTEZOMIB
     Indication: PLASMA CELL MYELOMA
     Route: 065

REACTIONS (3)
  - Pneumonia [Recovered/Resolved]
  - Neutropenia [Recovered/Resolved]
  - Drug intolerance [Recovered/Resolved]

NARRATIVE: CASE EVENT DATE: 2020
